FAERS Safety Report 6902643-X (Version None)
Quarter: 2010Q3

REPORT INFORMATION
  Report Type: 
  Country: None (occurrence: None)
  Receive Date: 20100803
  Receipt Date: 20080717
  Transmission Date: 20110219
  Serious: No
  Sender: FDA-Public Use
  Company Number: US-PFIZER INC-2008060314

PATIENT
  Sex: Male
  Weight: 127.3 kg

DRUGS (3)
  1. LYRICA [Suspect]
     Indication: ARTHRITIS
     Route: 048
     Dates: start: 20080201, end: 20080601
  2. PHENOBARBITAL [Concomitant]
  3. LORAZEPAM [Concomitant]

REACTIONS (3)
  - DIZZINESS [None]
  - FATIGUE [None]
  - SOMNOLENCE [None]
